FAERS Safety Report 8408372-8 (Version None)
Quarter: 2012Q2

REPORT INFORMATION
  Report Type: 
  Country: None (occurrence: None)
  Receive Date: 20120531
  Receipt Date: 20120531
  Transmission Date: 20120825
  Serious: Yes (Disabling)
  Sender: FDA-Public Use
  Company Number: None

PATIENT
  Sex: Female
  Weight: 74.8435 kg

DRUGS (3)
  1. MS CONTIN [Suspect]
     Indication: INTERVERTEBRAL DISC DEGENERATION
     Dosage: CURRENTLY 100 MG 2 QID AND ONE HS PO
     Route: 048
     Dates: start: 19960101
  2. MS CONTIN [Suspect]
     Indication: SCOLIOSIS
     Dosage: CURRENTLY 100 MG 2 QID AND ONE HS PO
     Route: 048
     Dates: start: 19960101
  3. MS CONTIN [Suspect]
     Indication: SCIATICA
     Dosage: CURRENTLY 100 MG 2 QID AND ONE HS PO
     Route: 048
     Dates: start: 19960101

REACTIONS (2)
  - DENTAL CARIES [None]
  - DRY MOUTH [None]
